FAERS Safety Report 7012536-8 (Version None)
Quarter: 2010Q3

REPORT INFORMATION
  Report Type: 
  Country: None (occurrence: None)
  Receive Date: 20100922
  Receipt Date: 20100922
  Transmission Date: 20110219
  Serious: Yes (Life-Threatening, Hospitalization)
  Sender: FDA-Public Use
  Company Number: None

PATIENT
  Sex: Female
  Weight: 71 kg

DRUGS (8)
  1. METOPROLOL SUCCINATE EXTENDED RELEASE [Suspect]
     Indication: HYPERTENSION
     Dosage: 50 MG DAILY PO
     Route: 048
     Dates: start: 20100918, end: 20100920
  2. ACTONEL [Concomitant]
  3. CALCIUM [Concomitant]
  4. MAGNESIUM SUPPLEMENT [Concomitant]
  5. MULTI-VITAMIN [Concomitant]
  6. RANITADINE [Concomitant]
  7. LORAZEPAM [Concomitant]
  8. LISINOPRIL [Concomitant]

REACTIONS (5)
  - ARRHYTHMIA [None]
  - DYSPNOEA [None]
  - EXTRASYSTOLES [None]
  - PALPITATIONS [None]
  - PRODUCT SUBSTITUTION ISSUE [None]
